FAERS Safety Report 8574314-8 (Version None)
Quarter: 2012Q3

REPORT INFORMATION
  Report Type: 
  Country: None (occurrence: None)
  Receive Date: 20120806
  Receipt Date: 20120727
  Transmission Date: 20120928
  Serious: Yes (Hospitalization, Other)
  Sender: FDA-Public Use
  Company Number: US-ABBOTT-11P-163-0713604-00

PATIENT
  Sex: Female
  Weight: 90.346 kg

DRUGS (28)
  1. METHYLCELLULOSE [Concomitant]
     Indication: PRODUCT USED FOR UNKNOWN INDICATION
  2. MULTI-VITAMINS [Concomitant]
     Indication: PRODUCT USED FOR UNKNOWN INDICATION
  3. TAMSULOSIN HYDROCHLORIDE [Concomitant]
     Indication: PRODUCT USED FOR UNKNOWN INDICATION
     Dosage: AT BEDTIME
  4. DIAZEPAM [Concomitant]
     Indication: ANXIETY
  5. FOLIC ACID [Concomitant]
     Indication: VITAMIN SUPPLEMENTATION
  6. HYDROCHLOROTHIAZDE TAB [Concomitant]
     Indication: PRODUCT USED FOR UNKNOWN INDICATION
  7. PREDNISONE [Concomitant]
     Indication: PRODUCT USED FOR UNKNOWN INDICATION
  8. KLOR-CON [Concomitant]
     Indication: BLOOD POTASSIUM DECREASED
  9. MECLIZINE HCL [Concomitant]
     Indication: MENIERE'S DISEASE
  10. POTASSIUM CHLORIDE [Concomitant]
     Indication: PRODUCT USED FOR UNKNOWN INDICATION
  11. VITAMIN D [Concomitant]
     Indication: PRODUCT USED FOR UNKNOWN INDICATION
  12. BENICAR [Concomitant]
     Indication: HYPERTENSION
  13. HUMIRA [Suspect]
     Indication: RHEUMATOID ARTHRITIS
  14. NEXIUM [Concomitant]
     Indication: GASTROOESOPHAGEAL REFLUX DISEASE
     Dosage: DAILY DOSE: 40MG
  15. ESTRADIOL [Concomitant]
     Indication: PRODUCT USED FOR UNKNOWN INDICATION
     Dosage: 1MG DAILY FOR 28 DAYS/MONTH
  16. OLMESARTAN MEDOXOMIL [Concomitant]
     Indication: PRODUCT USED FOR UNKNOWN INDICATION
  17. PAROXETINE HCL [Concomitant]
     Indication: PRODUCT USED FOR UNKNOWN INDICATION
  18. METHOTREXATE [Concomitant]
     Dosage: 4 TABS WEEKLY
     Dates: start: 20110101
  19. CITRACAL [Concomitant]
     Indication: MINERAL SUPPLEMENTATION
  20. HUMIRA [Suspect]
  21. SYNTHROID [Concomitant]
     Indication: HYPOTHYROIDISM
  22. VITAMIN E [Concomitant]
     Indication: VITAMIN SUPPLEMENTATION
  23. PAROXETINE [Concomitant]
     Indication: ANXIETY
  24. HUMIRA [Suspect]
     Indication: RHEUMATOID ARTHRITIS
     Route: 058
     Dates: start: 20030101
  25. DIAZEPAM [Concomitant]
     Indication: PANIC ATTACK
     Dosage: 5 MG EVERY 6 HOURS AS NEEDED
  26. ESTRADIOL [Concomitant]
     Dosage: ^THE 25TH DAY OF THE MONTH^
  27. METHOTREXATE [Concomitant]
     Indication: PRODUCT USED FOR UNKNOWN INDICATION
     Dosage: 2 TABS WEEKLY
     Dates: end: 20110101
  28. SENOKOT [Concomitant]
     Indication: LAXATIVE SUPPORTIVE CARE

REACTIONS (17)
  - LYMPHADENOPATHY [None]
  - PARATHYROID TUMOUR [None]
  - CATARACT [None]
  - COLON CANCER [None]
  - CHOLECYSTECTOMY [None]
  - COLITIS [None]
  - INTESTINAL OBSTRUCTION [None]
  - DIVERTICULITIS [None]
  - PRURITUS GENERALISED [None]
  - LOCALISED INFECTION [None]
  - PAIN [None]
  - OXYGEN SATURATION DECREASED [None]
  - COLONIC POLYP [None]
  - APPENDICECTOMY [None]
  - HYSTERECTOMY [None]
  - ARTHRALGIA [None]
  - VISUAL IMPAIRMENT [None]
